FAERS Safety Report 19965927 (Version 2)
Quarter: 2021Q4

REPORT INFORMATION
  Report Type: Spontaneous
  Country: RU (occurrence: RU)
  Receive Date: 20211019
  Receipt Date: 20211025
  Transmission Date: 20220303
  Serious: Yes (Death)
  Sender: FDA-Public Use
  Company Number: NVSC2021RU236523

PATIENT
  Age: 37 Year
  Sex: Female

DRUGS (1)
  1. MIDOSTAURIN [Suspect]
     Active Substance: MIDOSTAURIN
     Indication: Product used for unknown indication
     Dosage: TABLET
     Route: 065

REACTIONS (4)
  - Graft versus host disease [Fatal]
  - Condition aggravated [Fatal]
  - Product dose omission issue [Fatal]
  - Disease recurrence [Unknown]
